FAERS Safety Report 5448921-5 (Version None)
Quarter: 2007Q3

REPORT INFORMATION
  Report Type: 
  Country: None (occurrence: None)
  Receive Date: 20070906
  Receipt Date: 20070828
  Transmission Date: 20080115
  Serious: Yes (Hospitalization)
  Sender: FDA-Public Use
  Company Number: E3810-01199-SPO-US

PATIENT
  Age: 56 Year
  Sex: Female
  Weight: 60 kg

DRUGS (2)
  1. ACIPHEX [Suspect]
     Indication: GASTROOESOPHAGEAL REFLUX DISEASE
     Dosage: 20 MG, ORAL
     Route: 048
     Dates: start: 20060101, end: 20070801
  2. LOTRIL (ENALAPRIL) [Concomitant]

REACTIONS (11)
  - ASTHENIA [None]
  - BLOOD DISORDER [None]
  - BLOOD PRESSURE DECREASED [None]
  - BODY TEMPERATURE DECREASED [None]
  - DIARRHOEA [None]
  - GASTRIC DISORDER [None]
  - GASTROINTESTINAL DISORDER [None]
  - GASTROINTESTINAL PAIN [None]
  - HYPERHIDROSIS [None]
  - INFECTION [None]
  - SYNCOPE [None]
